FAERS Safety Report 8387623 (Version 6)
Quarter: 2013Q1

REPORT INFORMATION
  Report Type: Spontaneous
  Country: US (occurrence: None)
  Receive Date: 20120119
  Receipt Date: 20130228
  Transmission Date: 20140127
  Serious: Yes (Hospitalization, Other)
  Sender: FDA-Public Use
  Company Number: ADR-2011-11379

PATIENT
  Sex: Male

DRUGS (2)
  1. LIORESAL INTRATHECAL (BACLOFEN INJECTION) 2000 MCG/ML [Suspect]
     Indication: MUSCLE SPASTICITY
     Dosage: SEE IMAGE
     Route: 037
  2. LIORESAL INTRATHECAL (BACLOFEN INJECTION) 2000 MCG/ML [Suspect]
     Indication: CEREBRAL PALSY
     Dosage: SEE IMAGE
     Route: 037

REACTIONS (18)
  - Coma [None]
  - Device malfunction [None]
  - Blood pressure increased [None]
  - Pyrexia [None]
  - Muscle rigidity [None]
  - Dysarthria [None]
  - Hallucination, visual [None]
  - Incorrect dose administered by device [None]
  - Asthenia [None]
  - Rash [None]
  - Feeding disorder [None]
  - Somnolence [None]
  - Speech disorder [None]
  - Dysphagia [None]
  - Dysstasia [None]
  - Feeling drunk [None]
  - Product quality issue [None]
  - Drug interaction [None]
